FAERS Safety Report 7493250-1 (Version None)
Quarter: 2011Q2

REPORT INFORMATION
  Report Type: 
  Country: None (occurrence: None)
  Receive Date: 20110516
  Receipt Date: 20110516
  Transmission Date: 20111010
  Serious: Yes (Other)
  Sender: FDA-Public Use
  Company Number: None

PATIENT
  Age: 46 Year
  Sex: Female
  Weight: 73.9 kg

DRUGS (1)
  1. DOCETAXEL [Suspect]
     Indication: BREAST CANCER METASTATIC
     Dosage: 130.5MG X1 IV
     Route: 042
     Dates: start: 20110128

REACTIONS (2)
  - MALAISE [None]
  - FLUSHING [None]
